FAERS Safety Report 5365524-1 (Version None)
Quarter: 2007Q2

REPORT INFORMATION
  Report Type: 
  Country: None (occurrence: None)
  Receive Date: 20070621
  Receipt Date: 20070618
  Transmission Date: 20071010
  Serious: Yes (Hospitalization)
  Sender: FDA-Public Use
  Company Number: A0657230A

PATIENT
  Age: 72 Year
  Sex: Male

DRUGS (15)
  1. AVANDIA [Suspect]
     Dosage: 2MG PER DAY
     Route: 048
     Dates: start: 20020101, end: 20070619
  2. GLIPIZIDE [Concomitant]
  3. FINASTERIDE [Concomitant]
  4. PROTONIX [Concomitant]
  5. SINGULAIR [Concomitant]
  6. AVANDIA [Concomitant]
  7. LISINOPRIL [Concomitant]
  8. PLAVIX [Concomitant]
  9. METFORMIN HCL [Concomitant]
  10. FUROSEMIDE [Concomitant]
  11. KLOR-CON M [Concomitant]
  12. ADVAIR DISKUS 100/50 [Concomitant]
  13. ZETIA [Concomitant]
  14. COMBIVENT [Concomitant]
  15. CELEBREX [Concomitant]

REACTIONS (2)
  - MYOCARDIAL INFARCTION [None]
  - PNEUMONIA [None]
